FAERS Safety Report 24082344 (Version 2)
Quarter: 2024Q3

REPORT INFORMATION
  Report Type: Spontaneous
  Country: JP (occurrence: JP)
  Receive Date: 20240712
  Receipt Date: 20240806
  Transmission Date: 20241017
  Serious: Yes (Other)
  Sender: AMGEN
  Company Number: JP-AMGEN-JPNSP2024133920

PATIENT

DRUGS (1)
  1. EVENITY [Suspect]
     Active Substance: ROMOSOZUMAB-AQQG
     Indication: Osteoporosis
     Dosage: 210 MILLIGRAM
     Route: 058

REACTIONS (4)
  - Cerebral palsy [Unknown]
  - Hypophosphataemia [Unknown]
  - Tartrate-resistant acid phosphatase increased [Unknown]
  - Urine calcium/creatinine ratio increased [Unknown]
